FAERS Safety Report 9906007 (Version 1)
Quarter: 2013Q2

REPORT INFORMATION
  Report Type: Spontaneous
  Country: US (occurrence: None)
  Receive Date: 20130305
  Receipt Date: 20130305
  Transmission Date: 20140414
  Serious: Yes (Other)
  Sender: FDA-Public Use
  Company Number: 163-21880-12041831

PATIENT
  Age: 85 Year
  Sex: Male

DRUGS (2)
  1. REVLIMID (LENALIDOMIDE) (15 MILLIGRAM, CAPSULES) [Suspect]
     Indication: MYELODYSPLASTIC SYNDROME
     Route: 048
     Dates: start: 20120228
  2. BLOOD (BLOOD AND RELATED PRODUCTS) (UNKNOWN) [Concomitant]

REACTIONS (3)
  - Platelet count decreased [None]
  - Anaemia [None]
  - Rash [None]
